FAERS Safety Report 15155463 (Version 2)
Quarter: 2018Q3

REPORT INFORMATION
  Report Type: Spontaneous
  Country: US (occurrence: US)
  Receive Date: 20180717
  Receipt Date: 20180719
  Transmission Date: 20181010
  Serious: Yes (Other)
  Sender: FDA-Public Use
  Company Number: US-PFIZER INC-2018285418

PATIENT

DRUGS (2)
  1. AMIDATE [Suspect]
     Active Substance: ETOMIDATE
     Dosage: UNK
  2. AMIDATE [Suspect]
     Active Substance: ETOMIDATE
     Dosage: UNK

REACTIONS (1)
  - Seizure [Unknown]
